FAERS Safety Report 25707758 (Version 1)
Quarter: 2025Q3

REPORT INFORMATION
  Report Type: Spontaneous
  Country: EU (occurrence: EU)
  Receive Date: 20250820
  Receipt Date: 20250820
  Transmission Date: 20251020
  Serious: No
  Sender: BridgeBio Pharma
  Company Number: EU-BAYER-2025A105157

PATIENT
  Sex: Male

DRUGS (3)
  1. ACORAMIDIS [Suspect]
     Active Substance: ACORAMIDIS
  2. ACETAMIDE [Concomitant]
     Active Substance: ACETAMIDE
  3. LITHIUM [Concomitant]
     Active Substance: LITHIUM

REACTIONS (1)
  - Glomerular filtration rate decreased [Unknown]
